FAERS Safety Report 11718938 (Version 1)
Quarter: 2015Q4

REPORT INFORMATION
  Report Type: Spontaneous
  Country: US (occurrence: US)
  Receive Date: 20151110
  Receipt Date: 20151110
  Transmission Date: 20160304
  Serious: No
  Sender: FDA-Public Use
  Company Number: US-GLAXOSMITHKLINE-US2015158279

PATIENT
  Age: 53 Year
  Sex: Female

DRUGS (3)
  1. FLOVENT DISKUS [Suspect]
     Active Substance: FLUTICASONE PROPIONATE
     Indication: WHEEZING
     Route: 055
     Dates: start: 20150818, end: 20150819
  2. FLOVENT DISKUS [Suspect]
     Active Substance: FLUTICASONE PROPIONATE
     Indication: DYSPNOEA
  3. ALBUTEROL. [Concomitant]
     Active Substance: ALBUTEROL

REACTIONS (7)
  - Hypersensitivity [Not Recovered/Not Resolved]
  - Chest discomfort [Unknown]
  - Urticaria [Not Recovered/Not Resolved]
  - Ear pruritus [Unknown]
  - Throat irritation [Unknown]
  - Pallor [Unknown]
  - Emergency care examination [Unknown]

NARRATIVE: CASE EVENT DATE: 20150819
